FAERS Safety Report 10032664 (Version 2)
Quarter: 2014Q1

REPORT INFORMATION
  Report Type: Spontaneous
  Country: US (occurrence: US)
  Receive Date: 20140324
  Receipt Date: 20140327
  Transmission Date: 20141002
  Serious: Yes (Hospitalization)
  Sender: FDA-Public Use
  Company Number: US-GLAXOSMITHKLINE-A1066365A

PATIENT
  Age: 70 Year
  Sex: Female

DRUGS (1)
  1. COREG [Suspect]
     Indication: CHRONIC OBSTRUCTIVE PULMONARY DISEASE
     Dosage: 6.25MG UNKNOWN
     Route: 065
     Dates: start: 20051103

REACTIONS (2)
  - Investigation [Unknown]
  - Chronic obstructive pulmonary disease [Unknown]
